FAERS Safety Report 4991172-9 (Version None)
Quarter: 2006Q2

REPORT INFORMATION
  Report Type: 
  Country: None (occurrence: None)
  Receive Date: 20060427
  Receipt Date: 20060414
  Transmission Date: 20061013
  Serious: Yes (Hospitalization)
  Sender: FDA-Public Use
  Company Number: 2006052915

PATIENT
  Age: 85 Year
  Sex: Male

DRUGS (5)
  1. PREDNISONE TAB [Suspect]
     Indication: RHEUMATOID ARTHRITIS
     Dosage: 5 MG (1 D), ORAL
     Route: 048
     Dates: start: 19960101
  2. PANTOPRAZOLE SODIUM [Suspect]
     Indication: PROPHYLAXIS
     Dosage: 20 MG (20 MG, 1 IN 1D),ORAL
     Route: 048
  3. METHOTREXATE [Suspect]
     Indication: RHEUMATOID ARTHRITIS
     Dosage: 2.5 MG (4 IN 1 WK), ORAL
     Route: 048
     Dates: start: 19960101, end: 20051208
  4. DEXTROPROPOXPHENE/ PARACETAMOL) (DEXTROPROPOXYPHENE, PARACETAMOL) [Suspect]
     Indication: PAIN
     Dosage: ORAL
     Route: 048
  5. RISEDRONATE SODIUM [Suspect]
     Dosage: 35 MG (1 IN 1 WK), ORAL
     Route: 048

REACTIONS (3)
  - ANAEMIA MACROCYTIC [None]
  - MYELODYSPLASTIC SYNDROME [None]
  - RED BLOOD CELL ABNORMALITY [None]
